FAERS Safety Report 6392023-0 (Version None)
Quarter: 2009Q4

REPORT INFORMATION
  Report Type: 
  Country: None (occurrence: None)
  Receive Date: 20091007
  Receipt Date: 20090929
  Transmission Date: 20100525
  Serious: Yes (Other)
  Sender: FDA-Public Use
  Company Number: US-ROCHE-659731

PATIENT
  Age: 55 Year
  Sex: Female

DRUGS (13)
  1. TAMIFLU [Suspect]
     Indication: PROPHYLAXIS
     Route: 065
     Dates: start: 20080101
  2. TAMIFLU [Suspect]
     Route: 065
     Dates: start: 20090501
  3. TAMIFLU [Suspect]
     Route: 065
     Dates: start: 20090701
  4. PREDNISONE [Suspect]
     Indication: ANGIOEDEMA
     Route: 065
     Dates: start: 20090501
  5. ALTACE [Suspect]
     Indication: DRUG USE FOR UNKNOWN INDICATION
     Route: 065
  6. ALTACE [Suspect]
     Route: 065
     Dates: start: 20090701, end: 20090901
  7. LANTUS [Concomitant]
     Dosage: DRUG REPORTED: LANTUS INSULIN
  8. XYZAL [Concomitant]
  9. ASPIRIN [Concomitant]
  10. HYDROCHLOROTHIAZIDE [Concomitant]
  11. COLCHICINE [Concomitant]
     Dosage: DRUG REPORTED: COLCHISINE
  12. METFORMIN [Concomitant]
  13. ZOCOR [Concomitant]

REACTIONS (4)
  - ADRENAL INSUFFICIENCY [None]
  - ANGIOEDEMA [None]
  - ERYTHEMA NODOSUM [None]
  - RASH MACULO-PAPULAR [None]
